FAERS Safety Report 7703223-9 (Version None)
Quarter: 2011Q3

REPORT INFORMATION
  Report Type: 
  Country: None (occurrence: None)
  Receive Date: 20110823
  Receipt Date: 20110818
  Transmission Date: 20111222
  Serious: Yes (Other)
  Sender: FDA-Public Use
  Company Number: PL-ROXANE LABORATORIES, INC.-2011-RO-01154RO

PATIENT
  Age: 40 Year
  Sex: Female

DRUGS (2)
  1. AZATHIOPRINE [Suspect]
     Indication: CROHN'S DISEASE
     Dosage: 100 MG
  2. PROPRANOLOL [Suspect]
     Indication: PROPHYLAXIS
     Dosage: 30 MG

REACTIONS (6)
  - HEPATOSPLENOMEGALY [None]
  - VARICES OESOPHAGEAL [None]
  - PORTAL HYPERTENSION [None]
  - THROMBOCYTOPENIA [None]
  - CROHN'S DISEASE [None]
  - NODULAR REGENERATIVE HYPERPLASIA [None]
